FAERS Safety Report 4586515-4 (Version None)
Quarter: 2005Q1

REPORT INFORMATION
  Report Type: 
  Country: None (occurrence: None)
  Receive Date: 20050214
  Receipt Date: 20050131
  Transmission Date: 20050727
  Serious: Yes (Other)
  Sender: FDA-Public Use
  Company Number: 2005023091

PATIENT
  Age: 3 Year
  Sex: Male
  Weight: 16 kg

DRUGS (3)
  1. ZITHROMAX [Suspect]
     Indication: EAR INFECTION
     Dates: start: 20050130
  2. ZITHROMAX [Suspect]
     Indication: UPPER RESPIRATORY TRACT INFECTION
     Dates: start: 20050130
  3. OXCARBAZEPINE (OXCARBAZEPINE, OXCARBAZEPINE) [Concomitant]

REACTIONS (1)
  - URINARY RETENTION [None]
